FAERS Safety Report 7936767-5 (Version None)
Quarter: 2011Q4

REPORT INFORMATION
  Report Type: 
  Country: None (occurrence: None)
  Receive Date: 20111123
  Receipt Date: 20111111
  Transmission Date: 20120403
  Serious: Yes (Hospitalization)
  Sender: FDA-Public Use
  Company Number: US-PFIZER INC-2011276306

PATIENT
  Age: 72 Year
  Sex: Male
  Weight: 77.6 kg

DRUGS (1)
  1. SUNITINIB MALATE [Suspect]
     Indication: NON-SMALL CELL LUNG CANCER
     Dosage: 37.5 MG, 1X/DAY
     Route: 048
     Dates: start: 20110923, end: 20111021

REACTIONS (1)
  - MYOCARDIAL INFARCTION [None]
